FAERS Safety Report 12709341 (Version 1)
Quarter: 2016Q3

REPORT INFORMATION
  Report Type: Spontaneous
  Country: US (occurrence: None)
  Receive Date: 20160901
  Receipt Date: 20160901
  Transmission Date: 20161109
  Serious: Yes (Other)
  Sender: FDA-Public Use
  Company Number: None

PATIENT
  Age: 40 Year
  Sex: Female
  Weight: 53.07 kg

DRUGS (1)
  1. BOTOX [Suspect]
     Active Substance: ONABOTULINUMTOXINA
     Dates: start: 20160829

REACTIONS (6)
  - Asthenia [None]
  - Pyrexia [None]
  - Feeling abnormal [None]
  - Palpitations [None]
  - Dyspepsia [None]
  - Influenza [None]

NARRATIVE: CASE EVENT DATE: 20160830
